FAERS Safety Report 18057657 (Version 1)
Quarter: 2020Q3

REPORT INFORMATION
  Report Type: Spontaneous
  Country: CH (occurrence: CH)
  Receive Date: 20200723
  Receipt Date: 20200723
  Transmission Date: 20201103
  Serious: Yes (Life-Threatening, Hospitalization)
  Sender: FDA-Public Use
  Company Number: CH-TEVA-2020-CH-1802684

PATIENT
  Sex: Female

DRUGS (7)
  1. POSACONAZOLE [Suspect]
     Active Substance: POSACONAZOLE
     Indication: BRONCHOPULMONARY ASPERGILLOSIS
     Route: 065
  2. CYTARABINE. [Suspect]
     Active Substance: CYTARABINE
     Indication: ACUTE MYELOID LEUKAEMIA
     Route: 065
  3. FLUDARABINE [Suspect]
     Active Substance: FLUDARABINE PHOSPHATE
     Indication: ACUTE MYELOID LEUKAEMIA
     Route: 065
  4. RUXOLITINIB [Suspect]
     Active Substance: RUXOLITINIB
     Indication: IMMUNOSUPPRESSANT DRUG THERAPY
     Route: 065
  5. IDARUBICIN [Suspect]
     Active Substance: IDARUBICIN
     Indication: ACUTE MYELOID LEUKAEMIA
     Route: 065
  6. AMSACRINE [Suspect]
     Active Substance: AMSACRINE
     Indication: ACUTE MYELOID LEUKAEMIA
     Route: 065
  7. TACROLIMUS. [Suspect]
     Active Substance: TACROLIMUS
     Indication: IMMUNOSUPPRESSANT DRUG THERAPY
     Route: 065

REACTIONS (6)
  - Alveolar proteinosis [Recovered/Resolved]
  - Bronchopulmonary aspergillosis [Recovered/Resolved]
  - Respiratory failure [Recovered/Resolved]
  - Obliterative bronchiolitis [Recovered/Resolved]
  - Lower respiratory tract infection fungal [Recovered/Resolved]
  - Drug ineffective [Unknown]
